FAERS Safety Report 7329438-X (Version None)
Quarter: 2011Q1

REPORT INFORMATION
  Report Type: 
  Country: None (occurrence: None)
  Receive Date: 20110223
  Receipt Date: 20110209
  Transmission Date: 20110831
  Serious: Yes (Hospitalization, Other)
  Sender: FDA-Public Use
  Company Number: 2011EN000046

PATIENT
  Age: 39 Year
  Sex: Male

DRUGS (23)
  1. LIPIDIL [Concomitant]
  2. NASONEX [Concomitant]
  3. LYRICA [Concomitant]
  4. VENTOLIN [Concomitant]
  5. MAGNESIUM [Concomitant]
  6. COVERSYL [Concomitant]
  7. ACETAMINOPHEN [Concomitant]
  8. CODEINE [Concomitant]
  9. SOLUCORT [Concomitant]
  10. BECLOMETHASONE AQUEOUS [Concomitant]
  11. SYMBICORT [Concomitant]
  12. ONCASPAR [Suspect]
     Indication: ACUTE LYMPHOCYTIC LEUKAEMIA
     Dosage: SEE IMAGE
     Route: 042
     Dates: start: 20101118, end: 20101118
  13. ONCASPAR [Suspect]
     Indication: ACUTE LYMPHOCYTIC LEUKAEMIA
     Dosage: SEE IMAGE
     Route: 042
     Dates: start: 20101210, end: 20101210
  14. ONCASPAR [Suspect]
     Indication: ACUTE LYMPHOCYTIC LEUKAEMIA
     Dosage: SEE IMAGE
     Route: 042
     Dates: start: 20101005, end: 20101005
  15. ONCASPAR [Suspect]
     Indication: ACUTE LYMPHOCYTIC LEUKAEMIA
     Dosage: SEE IMAGE
     Route: 042
     Dates: start: 20101026, end: 20101026
  16. ONCASPAR [Suspect]
     Indication: ACUTE LYMPHOCYTIC LEUKAEMIA
     Dosage: SEE IMAGE
     Route: 042
     Dates: start: 20100715, end: 20100715
  17. ONCASPAR [Suspect]
     Indication: ACUTE LYMPHOCYTIC LEUKAEMIA
     Dosage: SEE IMAGE
     Route: 042
     Dates: start: 20110104, end: 20110104
  18. STEMETIL [Concomitant]
  19. ZANTAC [Concomitant]
  20. AMOXICILLIN AND CLAVULANATE POTASSIUM [Concomitant]
  21. DIFLUCAN [Concomitant]
  22. HEPARIN [Concomitant]
  23. SEROQUEL [Concomitant]

REACTIONS (5)
  - THROMBOCYTOPENIA [None]
  - FEBRILE NEUTROPENIA [None]
  - DEEP VEIN THROMBOSIS [None]
  - UPPER RESPIRATORY TRACT INFECTION [None]
  - PULMONARY EMBOLISM [None]
